FAERS Safety Report 25216044 (Version 1)
Quarter: 2025Q2

REPORT INFORMATION
  Report Type: Spontaneous
  Country: BR (occurrence: BR)
  Receive Date: 20250418
  Receipt Date: 20250418
  Transmission Date: 20250716
  Serious: Yes (Other)
  Sender: ROCHE
  Company Number: BR-ROCHE-10000253864

PATIENT
  Age: 62 Year
  Sex: Female

DRUGS (4)
  1. ATEZOLIZUMAB [Suspect]
     Active Substance: ATEZOLIZUMAB
     Indication: Small cell lung cancer extensive stage
     Route: 065
  2. CARBOPLATIN [Concomitant]
     Active Substance: CARBOPLATIN
     Indication: Small cell lung cancer extensive stage
  3. ETOPOSIDE [Concomitant]
     Active Substance: ETOPOSIDE
     Indication: Small cell lung cancer extensive stage
  4. TOPOTECAN HYDROCHLORIDE [Concomitant]
     Active Substance: TOPOTECAN HYDROCHLORIDE
     Indication: Small cell lung cancer extensive stage

REACTIONS (4)
  - Weight increased [Unknown]
  - Nausea [Recovering/Resolving]
  - Headache [Recovering/Resolving]
  - Nervous system disorder [Unknown]
